FAERS Safety Report 11681028 (Version 2)
Quarter: 2015Q4

REPORT INFORMATION
  Report Type: Spontaneous
  Country: US (occurrence: US)
  Receive Date: 20151027
  Receipt Date: 20151110
  Transmission Date: 20160304
  Serious: No
  Sender: FDA-Public Use
  Company Number: US-ELI_LILLY_AND_COMPANY-US201004003299

PATIENT
  Sex: Female

DRUGS (8)
  1. FORTEO [Suspect]
     Active Substance: TERIPARATIDE
     Indication: OSTEOPOROSIS
     Dosage: 20 UG, DAILY (1/D)
     Dates: start: 20081004, end: 2009
  2. FORTEO [Suspect]
     Active Substance: TERIPARATIDE
     Dosage: 20 UG, DAILY (1/D)
  3. XANAX [Concomitant]
     Active Substance: ALPRAZOLAM
  4. EXCEDRIN [Concomitant]
     Active Substance: ACETAMINOPHEN\ASPIRIN\CAFFEINE
     Indication: HEADACHE
  5. FORTEO [Suspect]
     Active Substance: TERIPARATIDE
     Dosage: 20 UG, DAILY (1/D)
  6. FORTEO [Suspect]
     Active Substance: TERIPARATIDE
     Dosage: 20 UG, DAILY (1/D)
     Dates: start: 2009
  7. ADVIL [Concomitant]
     Active Substance: IBUPROFEN
     Indication: HEADACHE
  8. AMBIEN [Concomitant]
     Active Substance: ZOLPIDEM TARTRATE

REACTIONS (12)
  - Palpitations [Unknown]
  - Myalgia [Not Recovered/Not Resolved]
  - Gingival pain [Not Recovered/Not Resolved]
  - Nausea [Unknown]
  - Heart rate increased [Unknown]
  - Injection site erythema [Unknown]
  - Bone loss [Unknown]
  - Toothache [Unknown]
  - Device related infection [Unknown]
  - Dizziness [Unknown]
  - Vision blurred [Unknown]
  - Feeling abnormal [Unknown]

NARRATIVE: CASE EVENT DATE: 2010
